FAERS Safety Report 5342331-7 (Version None)
Quarter: 2007Q2

REPORT INFORMATION
  Report Type: 
  Country: None (occurrence: None)
  Receive Date: 20070601
  Receipt Date: 20070528
  Transmission Date: 20071010
  Serious: Yes (Death)
  Sender: FDA-Public Use
  Company Number: AU-ASTRAZENECA-2007AP03142

PATIENT
  Age: 80 Year
  Sex: Female
  Weight: 70 kg

DRUGS (1)
  1. NAROPIN [Suspect]

REACTIONS (2)
  - CARDIAC ARREST [None]
  - OVERDOSE [None]
